FAERS Safety Report 25512600 (Version 1)
Quarter: 2025Q3

REPORT INFORMATION
  Report Type: Spontaneous
  Country: US (occurrence: US)
  Receive Date: 20250703
  Receipt Date: 20250703
  Transmission Date: 20251020
  Serious: No
  Sender: RADIUS PHARM
  Company Number: US-RADIUS HEALTH INC.-2024US008153

PATIENT
  Age: 76 Year
  Sex: Female

DRUGS (3)
  1. TYMLOS [Suspect]
     Active Substance: ABALOPARATIDE
     Indication: Osteoporosis
     Route: 058
     Dates: start: 20241001
  2. TYLENOL [Concomitant]
     Active Substance: ACETAMINOPHEN
     Indication: Osteoporosis
     Route: 065
  3. ALEVE [Concomitant]
     Active Substance: NAPROXEN SODIUM
     Indication: Product used for unknown indication
     Route: 065

REACTIONS (8)
  - Neck pain [Unknown]
  - Fatigue [Unknown]
  - Arthralgia [Unknown]
  - Heart rate increased [Recovered/Resolved]
  - Malaise [Unknown]
  - Pyrexia [Unknown]
  - Feeling hot [Unknown]
  - Headache [Recovered/Resolved]

NARRATIVE: CASE EVENT DATE: 20241001
